FAERS Safety Report 8811707 (Version 1)
Quarter: 2012Q4

REPORT INFORMATION
  Report Type: 
  Country: FR (occurrence: FR)
  Receive Date: 20120927
  Receipt Date: 20120927
  Transmission Date: 20130627
  Serious: Yes (Hospitalization)
  Sender: FDA-Public Use
  Company Number: PHHY2012FR083536

PATIENT
  Age: 7 Year

DRUGS (1)
  1. EXJADE [Suspect]
     Indication: SICKLE CELL ANAEMIA
     Dosage: UNK UKN, UNK

REACTIONS (3)
  - Coma [Unknown]
  - Pancreatitis [Unknown]
  - Liver function test abnormal [Unknown]
